FAERS Safety Report 7369809-9 (Version None)
Quarter: 2011Q1

REPORT INFORMATION
  Report Type: 
  Country: None (occurrence: None)
  Receive Date: 20110323
  Receipt Date: 20110318
  Transmission Date: 20110831
  Serious: Yes (Hospitalization, Other)
  Sender: FDA-Public Use
  Company Number: GB-EISAI INC-E2020-07872-SOL-GB

PATIENT
  Sex: Female
  Weight: 46 kg

DRUGS (9)
  1. ARICEPT [Suspect]
     Indication: DEMENTIA ALZHEIMER'S TYPE
     Route: 048
     Dates: start: 20090730, end: 20090101
  2. ARICEPT [Suspect]
     Route: 048
     Dates: start: 20100426, end: 20101229
  3. VALPROATE SODIUM [Concomitant]
     Route: 048
     Dates: start: 20101201, end: 20110101
  4. VALPROATE SODIUM [Concomitant]
     Route: 048
     Dates: start: 20110101
  5. BONIVA [Concomitant]
     Indication: OSTEOPOROSIS
     Dosage: 150 MG
     Route: 048
  6. LEVOTHYROXINE SODIUM [Concomitant]
     Indication: HYPOTHYROIDISM
     Route: 048
     Dates: start: 20100318
  7. ARICEPT [Suspect]
     Route: 048
     Dates: start: 20090824, end: 20100308
  8. VALPROATE SODIUM [Concomitant]
     Dosage: UNKNOWN
     Route: 048
  9. ARICEPT [Suspect]
     Route: 048
     Dates: start: 20110101

REACTIONS (3)
  - HEART RATE DECREASED [None]
  - CONVULSION [None]
  - LOSS OF CONSCIOUSNESS [None]
